FAERS Safety Report 9189297 (Version 1)
Quarter: 2013Q1

REPORT INFORMATION
  Report Type: Spontaneous
  Country: US (occurrence: None)
  Receive Date: 20130321
  Receipt Date: 20130321
  Transmission Date: 20140127
  Serious: Yes (Life-Threatening, Hospitalization)
  Sender: FDA-Public Use
  Company Number: None

PATIENT
  Age: 52 Year
  Sex: Male
  Weight: 76.8 kg

DRUGS (4)
  1. INSULIN [Suspect]
     Indication: DIABETES MELLITUS
     Dates: start: 20121210, end: 20121210
  2. EPINEPHRINE [Suspect]
  3. DEXAMETHASONE [Suspect]
     Route: 042
  4. DIPHENHYDRAMINE [Suspect]
     Route: 042

REACTIONS (9)
  - Dyspnoea [None]
  - Pruritus [None]
  - Flushing [None]
  - Headache [None]
  - Lip swelling [None]
  - Swollen tongue [None]
  - Angioedema [None]
  - Urticaria [None]
  - Hypersensitivity [None]
